FAERS Safety Report 9303815 (Version 2)
Quarter: 2013Q4

REPORT INFORMATION
  Report Type: Spontaneous
  Country: GB (occurrence: GB)
  Receive Date: 20130522
  Receipt Date: 20131018
  Transmission Date: 20140711
  Serious: Yes (Other)
  Sender: FDA-Public Use
  Company Number: GB-ASTRAZENECA-2013SE33442

PATIENT
  Age: 7 Year
  Sex: Male
  Weight: 50 kg

DRUGS (2)
  1. ZOLADEX LA [Suspect]
     Indication: PRECOCIOUS PUBERTY
     Route: 058
     Dates: start: 20100428, end: 20101111
  2. SODIUM CHLORIDE [Concomitant]

REACTIONS (1)
  - Bone marrow failure [Recovered/Resolved]
